FAERS Safety Report 23845396 (Version 2)
Quarter: 2024Q3

REPORT INFORMATION
  Report Type: Spontaneous
  Country: US (occurrence: US)
  Receive Date: 20240511
  Receipt Date: 20240716
  Transmission Date: 20241017
  Serious: No
  Sender: JOHNSON AND JOHNSON
  Company Number: US-JNJFOC-20240481604

PATIENT
  Sex: Female

DRUGS (5)
  1. WOMENS ROGAINE UNSCENTED [Suspect]
     Active Substance: MINOXIDIL
     Indication: Product used for unknown indication
     Dosage: LITTLE MORE THAN PRESCRIBED
     Route: 061
  2. AMANTADINE [Concomitant]
     Active Substance: AMANTADINE
     Indication: Parkinson^s disease
     Route: 065
     Dates: start: 2017
  3. RASAGILINE [Concomitant]
     Active Substance: RASAGILINE\RASAGILINE MESYLATE
     Indication: Parkinson^s disease
     Route: 065
     Dates: start: 2017
  4. CARBIDOPA\LEVODOPA [Concomitant]
     Active Substance: CARBIDOPA\LEVODOPA
     Indication: Parkinson^s disease
     Route: 065
     Dates: start: 2022
  5. GEMTESA [Concomitant]
     Active Substance: VIBEGRON
     Indication: Parkinson^s disease
     Route: 065
     Dates: start: 2022

REACTIONS (3)
  - Application site irritation [Unknown]
  - Overdose [Unknown]
  - Sensitive skin [Recovering/Resolving]
